FAERS Safety Report 24333694 (Version 1)
Quarter: 2024Q3

REPORT INFORMATION
  Report Type: Report from Study
  Country: US (occurrence: US)
  Receive Date: 20240918
  Receipt Date: 20240918
  Transmission Date: 20241017
  Serious: Yes (Hospitalization, Other)
  Sender: VERTEX
  Company Number: US-VERTEX PHARMACEUTICALS-2024-014583

PATIENT
  Sex: Female

DRUGS (41)
  1. TRIKAFTA [Suspect]
     Active Substance: ELEXACAFTOR\IVACAFTOR\TEZACAFTOR
     Indication: Cystic fibrosis
     Dosage: 2 TABS IN THE AM; 1 TAB IN THE PM
     Route: 048
     Dates: start: 20240502
  2. AIMOVIG [Concomitant]
     Active Substance: ERENUMAB-AOOE
  3. AMLODIPINE [Concomitant]
     Active Substance: AMLODIPINE BESYLATE
  4. ATOVAQUONE [Concomitant]
     Active Substance: ATOVAQUONE
     Dosage: 750 MG/ 5 ML
  5. AZATHIOPRINE [Concomitant]
     Active Substance: AZATHIOPRINE
  6. AZELASTINE [Concomitant]
     Active Substance: AZELASTINE\AZELASTINE HYDROCHLORIDE
     Route: 045
  7. AZITHROMYCIN [Concomitant]
     Active Substance: AZITHROMYCIN
  8. BELSOMRA [Concomitant]
     Active Substance: SUVOREXANT
  9. BUPROPION [Concomitant]
     Active Substance: BUPROPION
  10. FIORICET [Concomitant]
     Active Substance: ACETAMINOPHEN\BUTALBITAL\CAFFEINE
     Dosage: 50/325/40 MG
  11. CAYSTON [Concomitant]
     Active Substance: AZTREONAM
  12. CHLORTHALIDONE [Concomitant]
     Active Substance: CHLORTHALIDONE
  13. CONCERTA [Concomitant]
     Active Substance: METHYLPHENIDATE HYDROCHLORIDE
  14. CREON [Concomitant]
     Active Substance: PANCRELIPASE AMYLASE\PANCRELIPASE LIPASE\PANCRELIPASE PROTEASE
  15. DEEP SEA FISH OIL [Concomitant]
     Route: 045
  16. MINERALS\VITAMINS [Concomitant]
     Active Substance: MINERALS\VITAMINS
  17. DOCUSATE SODIUM [Concomitant]
     Active Substance: DOCUSATE SODIUM
  18. ENVARSUS XR [Concomitant]
     Active Substance: TACROLIMUS
     Dosage: 0.75 MG
  19. ENVARSUS XR [Concomitant]
     Active Substance: TACROLIMUS
     Dosage: 1 MG
  20. ENVARSUS XR [Concomitant]
     Active Substance: TACROLIMUS
     Dosage: 4 MG
  21. FIASP [Concomitant]
     Active Substance: INSULIN ASPART
  22. GABAPENTIN [Concomitant]
     Active Substance: GABAPENTIN
  23. GLYCERIN ADULT [Concomitant]
     Active Substance: GLYCERIN
  24. HYDROMORPHONE [Concomitant]
     Active Substance: HYDROMORPHONE
  25. INSULIN ASPART [Concomitant]
     Active Substance: INSULIN ASPART
     Dosage: 100 UNIT/ ML
  26. LEVALBUTEROL [Concomitant]
     Active Substance: LEVALBUTEROL
     Dosage: 0.63 MG/ 3 ML
     Route: 055
  27. LIDOCAINE [Concomitant]
     Active Substance: LIDOCAINE
  28. LORAZEPAM [Concomitant]
     Active Substance: LORAZEPAM
  29. NOVOLOG [Concomitant]
     Active Substance: INSULIN ASPART
  30. OMEPRAZOLE [Concomitant]
     Active Substance: OMEPRAZOLE
  31. ZOFRAN [Concomitant]
     Active Substance: ONDANSETRON HYDROCHLORIDE
  32. POLYETHYLENE GLYCOL [Concomitant]
     Active Substance: POLYETHYLENE GLYCOL
  33. PREDNISONE [Concomitant]
     Active Substance: PREDNISONE
  34. SENNA TABS [Concomitant]
     Active Substance: SENNOSIDES A AND B
  35. SODIUM CHLORIDE [Concomitant]
     Active Substance: SODIUM CHLORIDE
  36. TOBI [Concomitant]
     Active Substance: TOBRAMYCIN
  37. URSODIOL [Concomitant]
     Active Substance: URSODIOL
  38. VITAMIN D3 [Concomitant]
     Active Substance: CHOLECALCIFEROL
  39. WELLBUTRIN XL [Concomitant]
     Active Substance: BUPROPION HYDROCHLORIDE
  40. ZOLPIDEM [Concomitant]
     Active Substance: ZOLPIDEM TARTRATE
  41. FLUDROCORTISONE [Concomitant]
     Active Substance: FLUDROCORTISONE

REACTIONS (5)
  - Hospitalisation [Not Recovered/Not Resolved]
  - Gastrointestinal obstruction [Not Recovered/Not Resolved]
  - Constipation [Not Recovered/Not Resolved]
  - Dyspnoea [Not Recovered/Not Resolved]
  - Abdominal distension [Not Recovered/Not Resolved]

NARRATIVE: CASE EVENT DATE: 20240101
